FAERS Safety Report 25660143 (Version 1)
Quarter: 2025Q3

REPORT INFORMATION
  Report Type: Spontaneous
  Country: RU (occurrence: RU)
  Receive Date: 20250808
  Receipt Date: 20250808
  Transmission Date: 20251021
  Serious: Yes (Other)
  Sender: ROCHE
  Company Number: RU-ROCHE-10000351905

PATIENT
  Age: 71 Year

DRUGS (3)
  1. ATEZOLIZUMAB [Suspect]
     Active Substance: ATEZOLIZUMAB
     Indication: Bladder cancer stage II
     Route: 042
     Dates: start: 202311
  2. GEMCITABINE [Concomitant]
     Active Substance: GEMCITABINE
     Indication: Bladder cancer stage II
     Route: 042
     Dates: start: 202304, end: 20231019
  3. CISPLATIN [Concomitant]
     Active Substance: CISPLATIN
     Indication: Bladder cancer stage II
     Route: 042
     Dates: start: 202304, end: 20231019

REACTIONS (14)
  - Pyelocaliectasis [Unknown]
  - Pyelitis [Unknown]
  - Hydroureter [Unknown]
  - Renal cyst [Unknown]
  - Haemangioma of liver [Unknown]
  - Metastases to lung [Unknown]
  - Lung cyst [Unknown]
  - Thyroiditis [Unknown]
  - Lymphadenopathy [Unknown]
  - Ureteric stenosis [Unknown]
  - Ill-defined disorder [Unknown]
  - Autoimmune thyroiditis [Unknown]
  - Metastases to lymph nodes [Unknown]
  - Blood creatinine increased [Unknown]

NARRATIVE: CASE EVENT DATE: 20231124
